FAERS Safety Report 8581015-9 (Version None)
Quarter: 2012Q3

REPORT INFORMATION
  Report Type: 
  Country: None (occurrence: None)
  Receive Date: 20120809
  Receipt Date: 20120803
  Transmission Date: 20120928
  Serious: No
  Sender: FDA-Public Use
  Company Number: US-PFIZER INC-2012152040

PATIENT
  Age: 61 Year
  Sex: Male
  Weight: 77.098 kg

DRUGS (7)
  1. SUTENT [Suspect]
     Indication: RENAL CELL CARCINOMA
     Dosage: 50 MG, 1X/DAY
     Dates: start: 20120405
  2. ZOMETA [Suspect]
     Dosage: UNK
  3. SUTENT [Suspect]
     Dosage: 25 MG, CYCLIC
     Dates: end: 20120625
  4. SUTENT [Suspect]
     Dosage: 37.5 MG, CYCLIC, (12.5 X 3 CAPSULES)
     Dates: start: 20120710
  5. NORVASC [Concomitant]
     Dosage: 10 MG, UNK
  6. CIMETIDINE [Concomitant]
     Indication: ABDOMINAL DISCOMFORT
     Dosage: UNK
  7. DIAZEPAM [Concomitant]
     Dosage: UNK

REACTIONS (7)
  - OEDEMA PERIPHERAL [None]
  - PAIN IN EXTREMITY [None]
  - CHEST PAIN [None]
  - JOINT SWELLING [None]
  - DYSGEUSIA [None]
  - BACK PAIN [None]
  - PAIN [None]
